FAERS Safety Report 11180239 (Version 1)
Quarter: 2015Q2

REPORT INFORMATION
  Report Type: Spontaneous
  Country: NO (occurrence: None)
  Receive Date: 20150609
  Receipt Date: 20150609
  Transmission Date: 20150821
  Serious: Yes (Other)
  Sender: FDA-Public Use
  Company Number: FK201502558

PATIENT
  Age: 17 Year
  Sex: Female

DRUGS (6)
  1. PREDNISOLON (PREDNISOLONE) (PREDNISOLONE) [Concomitant]
  2. DOXORUBICIN [Concomitant]
     Active Substance: DOXORUBICIN
  3. NEXIUM (ESOMEPRAZOLE) (ESOMEPRAZOLE) [Concomitant]
  4. ETOPOSIDE. [Concomitant]
     Active Substance: ETOPOSIDE
  5. VINCRISTINE [Concomitant]
     Active Substance: VINCRISTINE
  6. ONDANSETRON. [Suspect]
     Active Substance: ONDANSETRON
     Indication: PRODUCT USED FOR UNKNOWN INDICATION
     Route: 051
     Dates: end: 20150402

REACTIONS (4)
  - Abdominal pain [None]
  - Pruritus [None]
  - Lip swelling [None]
  - Blister [None]

NARRATIVE: CASE EVENT DATE: 20150502
